FAERS Safety Report 8966441 (Version 1)
Quarter: 2012Q4

REPORT INFORMATION
  Report Type: 
  Country: IT (occurrence: IT)
  Receive Date: 20121217
  Receipt Date: 20121217
  Transmission Date: 20130627
  Serious: Yes (Other)
  Sender: FDA-Public Use
  Company Number: IT-TEVA-374339ISR

PATIENT
  Age: 64 Year
  Sex: Female

DRUGS (6)
  1. CARBOPLATIN [Suspect]
     Indication: OVARIAN CANCER
     Dosage: 450 Milligram Daily;
     Route: 041
     Dates: start: 20121130, end: 20121130
  2. PACLITAXEL [Concomitant]
     Dosage: 250 Milligram Daily;
     Route: 042
  3. ZOFRAN [Concomitant]
     Dosage: 8 Milligram Daily;
     Route: 042
  4. RANIDIL [Concomitant]
     Route: 042
  5. TRIMETON [Concomitant]
     Dosage: 10 Milligram Daily;
     Route: 042
  6. DECADRON [Concomitant]
     Dosage: 20 Milligram Daily;
     Route: 042

REACTIONS (7)
  - Dyspnoea [Recovering/Resolving]
  - Erythema [Recovering/Resolving]
  - Nausea [Recovering/Resolving]
  - Feeling hot [Recovering/Resolving]
  - Bladder spasm [Recovering/Resolving]
  - Nasal congestion [Recovering/Resolving]
  - Cough [Recovering/Resolving]
